FAERS Safety Report 4590095-7 (Version None)
Quarter: 2005Q1

REPORT INFORMATION
  Report Type: 
  Country: None (occurrence: None)
  Receive Date: 20050217
  Receipt Date: 20050201
  Transmission Date: 20050727
  Serious: Yes (Death, Hospitalization)
  Sender: FDA-Public Use
  Company Number: 2005JP000236

PATIENT
  Age: 59 Year
  Sex: Female

DRUGS (1)
  1. PROGRAF [Suspect]
     Indication: RENAL TRANSPLANT

REACTIONS (17)
  - ABDOMINAL DISCOMFORT [None]
  - ABSCESS [None]
  - ASPERGILLOSIS [None]
  - ASTHENIA [None]
  - CYTOMEGALOVIRUS CHORIORETINITIS [None]
  - FUNGAL SEPSIS [None]
  - OSTEOLYSIS [None]
  - OSTEONECROSIS [None]
  - PARAESTHESIA [None]
  - PARAPARESIS [None]
  - SENSORY DISTURBANCE [None]
  - SEPTIC SHOCK [None]
  - SPONDYLITIS [None]
  - THROMBOCYTOPENIA [None]
  - TUBERCULOSIS GASTROINTESTINAL [None]
  - WOUND [None]
  - WOUND SECRETION [None]
